FAERS Safety Report 8855907 (Version 1)
Quarter: 2012Q4

REPORT INFORMATION
  Report Type: Spontaneous
  Country: US (occurrence: None)
  Receive Date: 20121022
  Receipt Date: 20121022
  Transmission Date: 20130627
  Serious: Yes (Other)
  Sender: FDA-Public Use
  Company Number: None

PATIENT
  Sex: Female

DRUGS (1)
  1. ENBREL 50 AMGEN [Suspect]
     Indication: PSORIASIS
     Route: 058
     Dates: start: 20120803, end: 20121003

REACTIONS (3)
  - Headache [None]
  - Weight increased [None]
  - Fibromyalgia [None]
